FAERS Safety Report 7183496-4 (Version None)
Quarter: 2010Q4

REPORT INFORMATION
  Report Type: 
  Country: None (occurrence: None)
  Receive Date: 20101222
  Receipt Date: 20101209
  Transmission Date: 20110411
  Serious: Yes (Hospitalization, Other)
  Sender: FDA-Public Use
  Company Number: PHFR2005IE03374

PATIENT
  Sex: Female

DRUGS (8)
  1. CLOZARIL [Suspect]
     Indication: SCHIZOPHRENIA
     Dosage: 425MG DAILY
     Route: 048
     Dates: start: 20040413
  2. CLOZARIL [Suspect]
     Dosage: UNK
     Route: 048
     Dates: start: 20040413
  3. CLOZARIL [Suspect]
     Route: 048
     Dates: start: 20040413, end: 19000101
  4. CHEMOTHERAPEUTICS,OTHER [Suspect]
     Indication: NON-SMALL CELL LUNG CANCER
     Dosage: UNK
     Route: 065
  5. VALPROATE SODIUM [Suspect]
     Dosage: UNK
  6. CITALOPRAM [Concomitant]
     Indication: DEPRESSION
     Dosage: 60MG/DAY
     Route: 048
     Dates: start: 20030101
  7. PROPRANOLOL [Concomitant]
     Indication: ANXIETY
     Dosage: 45MG/DAY
     Route: 048
     Dates: start: 20020101
  8. ALIMTA [Concomitant]
     Indication: METASTASES TO BONE

REACTIONS (6)
  - BONE DISORDER [None]
  - CONVULSION [None]
  - NEUTROPHIL COUNT DECREASED [None]
  - NON-SMALL CELL LUNG CANCER [None]
  - THROMBOCYTOPENIA [None]
  - WHITE BLOOD CELL COUNT DECREASED [None]
